FAERS Safety Report 9959036 (Version 2)
Quarter: 2014Q1

REPORT INFORMATION
  Report Type: Spontaneous
  Country: US (occurrence: None)
  Receive Date: 20140227
  Receipt Date: 20140313
  Transmission Date: 20141002
  Serious: Yes (Other)
  Sender: FDA-Public Use
  Company Number: NXG-14-001

PATIENT
  Sex: Female

DRUGS (1)
  1. MAG OX [Suspect]

REACTIONS (1)
  - Vaginal haemorrhage [None]
